FAERS Safety Report 8135721-0 (Version None)
Quarter: 2012Q1

REPORT INFORMATION
  Report Type: 
  Country: None (occurrence: None)
  Receive Date: 20120214
  Receipt Date: 20120126
  Transmission Date: 20120608
  Serious: Yes (Death, Congenital Anomaly, Other)
  Sender: FDA-Public Use
  Company Number: DK-US-EMD SERONO, INC.-060001M04DNK

PATIENT
  Sex: Male

DRUGS (1)
  1. SEROPHENE [Suspect]
     Indication: PRODUCT USED FOR UNKNOWN INDICATION
     Route: 050

REACTIONS (2)
  - POTTER'S SYNDROME [None]
  - FOETAL EXPOSURE DURING PREGNANCY [None]
